FAERS Safety Report 8061890-7 (Version None)
Quarter: 2012Q1

REPORT INFORMATION
  Report Type: 
  Country: None (occurrence: None)
  Receive Date: 20120117
  Receipt Date: 20120106
  Transmission Date: 20120608
  Serious: Yes (Hospitalization, Disabling, Other)
  Sender: FDA-Public Use
  Company Number: 2012MA000355

PATIENT
  Age: 70 Year
  Sex: Male
  Weight: 117.9352 kg

DRUGS (83)
  1. LOTREL [Concomitant]
  2. CIMETIDINE [Concomitant]
  3. DONEPEZIL HCL [Concomitant]
  4. DOMPERIDONE [Concomitant]
  5. DOXYCYCLINE [Concomitant]
  6. METFORMIN HCL [Concomitant]
  7. METHYLPREDNISOLONE [Concomitant]
  8. NASONEX [Concomitant]
  9. NORCO [Concomitant]
  10. NPH INSULIN [Concomitant]
  11. STALEVO 100 [Concomitant]
  12. TRIMETHOPRIM [Concomitant]
  13. ONDANSETRON HCL [Concomitant]
  14. METOCLOPRAMIDE [Suspect]
     Indication: GASTRIC DISORDER
     Dosage: 10 MG;BID;PO
     Route: 048
     Dates: start: 20011102, end: 20090127
  15. METOCLOPRAMIDE [Suspect]
     Indication: IMPAIRED GASTRIC EMPTYING
     Dosage: 10 MG;BID;PO
     Route: 048
     Dates: start: 20011102, end: 20090127
  16. AVELOX [Concomitant]
  17. DAPIPRAZOLE [Concomitant]
  18. FLUCONAZOLE [Concomitant]
  19. CHONDROTIN SULFATE [Concomitant]
  20. LIPITOR [Concomitant]
  21. NAMENDA [Concomitant]
  22. NITROGLYCERIN [Concomitant]
  23. PANTOPRAZOLE [Concomitant]
  24. POTASSIUM CHLORIDE [Concomitant]
  25. PREVACID [Concomitant]
  26. PROPOXYPHENE HYDROCHLORIDE [Concomitant]
  27. TROSPIUM CHLORIDE [Concomitant]
  28. AMIODARONE HCL [Concomitant]
  29. ASPIRIN [Concomitant]
  30. CEFDINIR [Concomitant]
  31. CEFTIN [Concomitant]
  32. CLARITHROMYCIN [Concomitant]
  33. FENOFIBRATE [Concomitant]
  34. MEDROL [Concomitant]
  35. NEXIUM [Concomitant]
  36. OXYBUTYNIN [Concomitant]
  37. AMOXICILLIN [Concomitant]
  38. SPIRONOLACTONE [Concomitant]
  39. CRESTOR [Concomitant]
  40. ENABLEX [Concomitant]
  41. FUROSEMIDE [Concomitant]
  42. GLYBURIDE [Concomitant]
  43. LISINOPRIL [Concomitant]
  44. LORATADINE [Concomitant]
  45. MIRALAX [Concomitant]
  46. OMEGA-2-ACID [Concomitant]
  47. PROVENTIL [Concomitant]
  48. STEROIDS [Concomitant]
  49. VITAMIN TAB [Concomitant]
  50. BIAXIN [Concomitant]
  51. BENICAR [Concomitant]
  52. DILAUDID [Concomitant]
  53. FINASTERIDE [Concomitant]
  54. GLIPIZIDE [Concomitant]
  55. HYDROCODONE [Concomitant]
  56. NAPROXEN [Concomitant]
  57. SOLIFENACIN SUCCINATE [Concomitant]
  58. SULFAMETHOXAZOLE [Concomitant]
  59. TORADOL [Concomitant]
  60. APAP TAB [Concomitant]
  61. ALBUTEROL [Concomitant]
  62. AUGMENTIN '125' [Concomitant]
  63. CHERATUSSIN AC [Concomitant]
  64. GLUCOSAMINE [Concomitant]
  65. LOVASTATIN [Concomitant]
  66. MECLIZINE [Concomitant]
  67. METOPROLOL SUCCINATE [Concomitant]
  68. MUCINEX [Concomitant]
  69. PERCOCET [Concomitant]
  70. TAMSULOSIN HCL [Concomitant]
  71. VICODIN [Concomitant]
  72. ZITHROMAX [Concomitant]
  73. CODEINE [Concomitant]
  74. ACIPHEX [Concomitant]
  75. ACTOS [Concomitant]
  76. ALLEGRA-D 12 HOUR [Concomitant]
  77. AMLODIPINE [Concomitant]
  78. ATIVAN [Concomitant]
  79. CLOPIDOGREL [Concomitant]
  80. NASACORT [Concomitant]
  81. OMEPRAZOLE [Concomitant]
  82. PHENAZOPYRIDINE HCL TAB [Concomitant]
  83. ZANTAC [Concomitant]

REACTIONS (121)
  - NIGHT SWEATS [None]
  - GASTRIC DISORDER [None]
  - POSTURE ABNORMAL [None]
  - ANGINA UNSTABLE [None]
  - CEREBRAL MICROANGIOPATHY [None]
  - VITAL CAPACITY DECREASED [None]
  - WEIGHT INCREASED [None]
  - BACK PAIN [None]
  - VERTIGO POSITIONAL [None]
  - NECK PAIN [None]
  - CHOLELITHIASIS [None]
  - CHRONIC OBSTRUCTIVE PULMONARY DISEASE [None]
  - BRONCHITIS [None]
  - COUGH [None]
  - GALLBLADDER DISORDER [None]
  - EAR CONGESTION [None]
  - NAUSEA [None]
  - PARAESTHESIA ORAL [None]
  - HEADACHE [None]
  - MOBILITY DECREASED [None]
  - CONTUSION [None]
  - EJECTION FRACTION DECREASED [None]
  - FEMORAL ARTERY OCCLUSION [None]
  - BILIARY DYSKINESIA [None]
  - MUSCULOSKELETAL STIFFNESS [None]
  - ARTERIAL OCCLUSIVE DISEASE [None]
  - MUSCULAR WEAKNESS [None]
  - FATIGUE [None]
  - MOTOR DYSFUNCTION [None]
  - SENSORY DISTURBANCE [None]
  - DYSPNOEA EXERTIONAL [None]
  - SINUS HEADACHE [None]
  - NEUROFIBROMA [None]
  - INTERVERTEBRAL DISC PROTRUSION [None]
  - DIVERTICULUM INTESTINAL [None]
  - DEAFNESS [None]
  - TENDON DISORDER [None]
  - BALANCE DISORDER [None]
  - EXCORIATION [None]
  - ARTERIOSCLEROSIS [None]
  - CONSTIPATION [None]
  - DIASTOLIC DYSFUNCTION [None]
  - IMPAIRED GASTRIC EMPTYING [None]
  - TYMPANIC MEMBRANE PERFORATION [None]
  - GAIT DISTURBANCE [None]
  - DIZZINESS [None]
  - IRRITABILITY [None]
  - NEUROGENIC BLADDER [None]
  - ROTATOR CUFF SYNDROME [None]
  - SINUSITIS [None]
  - ABDOMINAL DISTENSION [None]
  - ACUTE CORONARY SYNDROME [None]
  - ATAXIA [None]
  - BENIGN PROSTATIC HYPERPLASIA [None]
  - PAIN [None]
  - EAR HAEMORRHAGE [None]
  - TREMOR [None]
  - HYPOXIA [None]
  - AMNESIA [None]
  - BUNDLE BRANCH BLOCK RIGHT [None]
  - CAROTID ARTERIOSCLEROSIS [None]
  - INTERVERTEBRAL DISC SPACE NARROWING [None]
  - CAROTID ARTERY STENOSIS [None]
  - MUSCLE ATROPHY [None]
  - PERIARTHRITIS [None]
  - COGWHEEL RIGIDITY [None]
  - DEPRESSION [None]
  - DYSPNOEA [None]
  - ERECTILE DYSFUNCTION [None]
  - HEAD INJURY [None]
  - NOCTURNAL DYSPNOEA [None]
  - POLYNEUROPATHY [None]
  - OEDEMA [None]
  - POST PROCEDURAL COMPLICATION [None]
  - COORDINATION ABNORMAL [None]
  - HEPATOBILIARY SCAN ABNORMAL [None]
  - DIABETIC NEUROPATHY [None]
  - OBSTRUCTIVE AIRWAYS DISORDER [None]
  - LEFT VENTRICULAR HYPERTROPHY [None]
  - EXTRAPYRAMIDAL DISORDER [None]
  - TARDIVE DYSKINESIA [None]
  - CEREBRAL ATROPHY [None]
  - AGITATION [None]
  - ERUCTATION [None]
  - BLADDER DYSFUNCTION [None]
  - LIGAMENT SPRAIN [None]
  - RENAL FAILURE CHRONIC [None]
  - ASTHENIA [None]
  - HYPERLIPIDAEMIA [None]
  - INSOMNIA [None]
  - STOMATITIS [None]
  - OSTEOARTHRITIS [None]
  - EAR PAIN [None]
  - DEMENTIA ALZHEIMER'S TYPE [None]
  - DELIRIUM [None]
  - ABDOMINAL PAIN UPPER [None]
  - PERIPHERAL ARTERIAL OCCLUSIVE DISEASE [None]
  - SPINAL OSTEOARTHRITIS [None]
  - ANXIETY [None]
  - ARTHRALGIA [None]
  - CHEST PAIN [None]
  - EMOTIONAL DISORDER [None]
  - ESSENTIAL HYPERTENSION [None]
  - DYSGEUSIA [None]
  - DIABETES MELLITUS INADEQUATE CONTROL [None]
  - ACTIVITIES OF DAILY LIVING IMPAIRED [None]
  - INTERMITTENT CLAUDICATION [None]
  - MALAISE [None]
  - PARKINSON'S DISEASE [None]
  - OEDEMA PERIPHERAL [None]
  - PERIPHERAL VASCULAR DISORDER [None]
  - REGURGITATION [None]
  - MUSCULOSKELETAL PAIN [None]
  - SINUS CONGESTION [None]
  - URINARY INCONTINENCE [None]
  - BLADDER NEOPLASM [None]
  - GASTRITIS EROSIVE [None]
  - FALL [None]
  - RHINITIS ALLERGIC [None]
  - APRAXIA [None]
  - ARRHYTHMIA [None]
